FAERS Safety Report 9758751 (Version 1)
Quarter: 2013Q4

REPORT INFORMATION
  Report Type: Spontaneous
  Country: US (occurrence: None)
  Receive Date: 20131216
  Receipt Date: 20131216
  Transmission Date: 20140711
  Serious: Yes (Death, Other)
  Sender: FDA-Public Use
  Company Number: 070329

PATIENT
  Sex: Female
  Weight: 77 kg

DRUGS (1)
  1. CIMZIA [Suspect]
     Indication: RHEUMATOID ARTHRITIS
     Dosage: (200 MG 1X/14 DAYS, 200 MG EVERY 14 DAYS SUBCUTANEOUS)

REACTIONS (2)
  - Lung cancer metastatic [None]
  - Hepatic cancer [None]
